FAERS Safety Report 4478437-4 (Version None)
Quarter: 2004Q4

REPORT INFORMATION
  Report Type: 
  Country: None (occurrence: None)
  Receive Date: 20041018
  Receipt Date: 20041018
  Transmission Date: 20050328
  Serious: Yes (Hospitalization)
  Sender: FDA-Public Use
  Company Number: None

PATIENT
  Age: 56 Year
  Sex: Male
  Weight: 88.6 kg

DRUGS (5)
  1. HALOPERIDOL DECANOATE [Suspect]
     Indication: SCHIZOPHRENIA, PARANOID TYPE
     Dosage: 100 MG  Q 2WEEKS INTRAMUSCU
     Route: 030
  2. CLONAZEPAM [Concomitant]
  3. HALOPERIDOL [Concomitant]
  4. OLANZAPINE [Concomitant]
  5. TRIHEXYPHENIDYL HCL [Concomitant]

REACTIONS (5)
  - FACIAL PAIN [None]
  - LEUKOCYTOSIS [None]
  - NEUROLEPTIC MALIGNANT SYNDROME [None]
  - PHOTOPHOBIA [None]
  - PYREXIA [None]
